FAERS Safety Report 8965902 (Version 2)
Quarter: 2015Q1

REPORT INFORMATION
  Report Type: Spontaneous
  Country: IT (occurrence: IT)
  Receive Date: 20121217
  Receipt Date: 20150226
  Transmission Date: 20150721
  Serious: Yes (Hospitalization)
  Sender: FDA-Public Use
  Company Number: IT-RANBAXY-2012R1-63033

PATIENT
  Sex: Male
  Weight: 2.24 kg

DRUGS (7)
  1. MORPHINE [Suspect]
     Active Substance: MORPHINE
     Indication: DRUG WITHDRAWAL SYNDROME NEONATAL
     Dosage: 0.3 MG/KG, DAILY
     Route: 048
  2. MORPHINE [Suspect]
     Active Substance: MORPHINE
     Indication: DRUG WITHDRAWAL SYNDROME NEONATAL
     Dosage: 0.5 MG/KG/24HRS ON 4 DIVIDED DOSES EVERY 6 HOURS.
     Route: 048
  3. MORPHINE [Suspect]
     Active Substance: MORPHINE
     Indication: DRUG WITHDRAWAL SYNDROME NEONATAL
     Dosage: 0.4 MG/KG/24HRS IN THREE DIVIDED DOSES EVERY 8 HOURS ON DAY 4
     Route: 048
  4. MORPHINE [Suspect]
     Active Substance: MORPHINE
     Indication: DRUG WITHDRAWAL SYNDROME NEONATAL
     Dosage: 0.7 MG/KG, DAILY
     Route: 048
  5. ZIDOVUDINE. [Concomitant]
     Active Substance: ZIDOVUDINE
     Indication: PROPHYLAXIS AGAINST HIV INFECTION
     Dosage: UNK
     Route: 048
  6. MORPHINE [Suspect]
     Active Substance: MORPHINE
     Dosage: 0.4 MG/KG/24HRS IN THREE DIVIDED DOSES EVERY 8 HOURS ON DAY 5
     Route: 048
  7. MORPHINE [Suspect]
     Active Substance: MORPHINE
     Indication: DRUG WITHDRAWAL SYNDROME NEONATAL
     Dosage: 0.6 MG/KG/24HRS
     Route: 048

REACTIONS (4)
  - Hydronephrosis [Recovered/Resolved]
  - Drug level increased [Recovered/Resolved]
  - Acute kidney injury [Recovered/Resolved]
  - Drug-disease interaction [Recovered/Resolved]
